FAERS Safety Report 25452406 (Version 1)
Quarter: 2025Q2

REPORT INFORMATION
  Report Type: Spontaneous
  Country: US (occurrence: US)
  Receive Date: 20250618
  Receipt Date: 20250618
  Transmission Date: 20250717
  Serious: No
  Sender: FERRING
  Company Number: US-FERRINGPH-2025FE01840

PATIENT
  Age: 74 Year
  Sex: Female
  Weight: 113.38 kg

DRUGS (10)
  1. REBYOTA [Suspect]
     Active Substance: DONOR HUMAN STOOL
     Indication: Clostridium difficile infection
     Dosage: 150 ML, ONCE/SINGLE
     Route: 054
     Dates: start: 20250213, end: 20250213
  2. ATORVASTATIN [Concomitant]
     Active Substance: ATORVASTATIN
     Indication: Blood cholesterol increased
     Dosage: 10 MG, DAILY
     Route: 065
  3. HUMIRA [Concomitant]
     Active Substance: ADALIMUMAB
     Indication: Crohn^s disease
     Dosage: 40 MG, WEEKLY
     Route: 058
  4. PROLIA [Concomitant]
     Active Substance: DENOSUMAB
     Route: 058
  5. LIALDA [Concomitant]
     Active Substance: MESALAMINE
     Route: 065
  6. ELIQUIS [Concomitant]
     Active Substance: APIXABAN
     Indication: Atrial fibrillation
     Dosage: 2.5 MG, DAILY
     Route: 065
  7. NISOLDIPINE [Concomitant]
     Active Substance: NISOLDIPINE
     Dosage: 20 MG, DAILY
  8. LABETALOL [Concomitant]
     Active Substance: LABETALOL
     Dosage: 100 MG, DAILY
  9. SYNTHROID [Concomitant]
     Active Substance: LEVOTHYROXINE SODIUM
     Indication: Hypothyroidism
     Dosage: 125 UG, DAILY
  10. VANCOMYCIN [Concomitant]
     Active Substance: VANCOMYCIN
     Indication: Clostridium difficile infection
     Route: 065
     Dates: start: 20250103, end: 20250211

REACTIONS (1)
  - Clostridium test positive [Unknown]

NARRATIVE: CASE EVENT DATE: 20250328
